FAERS Safety Report 15116176 (Version 1)
Quarter: 2018Q3

REPORT INFORMATION
  Report Type: Spontaneous
  Country: US (occurrence: US)
  Receive Date: 20180612
  Receipt Date: 20180612
  Transmission Date: 20181010
  Serious: Yes (Hospitalization)
  Sender: FDA-Public Use
  Company Number: None

PATIENT
  Sex: Female

DRUGS (16)
  1. HYDROXYCHLOROQUINE S TAB [Suspect]
     Active Substance: HYDROXYCHLOROQUINE SULFATE
     Indication: ARTHRITIS
     Route: 048
  2. FENTANYL. [Concomitant]
     Active Substance: FENTANYL
  3. LORAZEPAM. [Concomitant]
     Active Substance: LORAZEPAM
  4. VERAPAMIL [Concomitant]
     Active Substance: VERAPAMIL HYDROCHLORIDE
  5. TOPIRAMATE. [Concomitant]
     Active Substance: TOPIRAMATE
  6. HYDROXYZ HCL [Concomitant]
     Active Substance: HYDROXYZINE HYDROCHLORIDE
  7. ESZOPICLONE. [Concomitant]
     Active Substance: ESZOPICLONE
  8. CLOPIDOGREL [Concomitant]
     Active Substance: CLOPIDOGREL BISULFATE
  9. DOXEPIN [Concomitant]
     Active Substance: DOXEPIN
  10. DULOXETINE. [Concomitant]
     Active Substance: DULOXETINE
  11. METHOTREXATE. [Concomitant]
     Active Substance: METHOTREXATE
  12. GABAPENTIN. [Concomitant]
     Active Substance: GABAPENTIN
  13. ZONISAMIDE. [Concomitant]
     Active Substance: ZONISAMIDE
  14. FOLIC ACID. [Concomitant]
     Active Substance: FOLIC ACID
  15. PROMETHAZINE [Concomitant]
     Active Substance: PROMETHAZINE\PROMETHAZINE HYDROCHLORIDE
  16. AMITIZA [Concomitant]
     Active Substance: LUBIPROSTONE

REACTIONS (3)
  - Cerebrovascular accident [None]
  - Vomiting [None]
  - Product substitution issue [None]
